FAERS Safety Report 21425092 (Version 1)
Quarter: 2022Q4

REPORT INFORMATION
  Report Type: Spontaneous
  Country: ES (occurrence: ES)
  Receive Date: 20221008
  Receipt Date: 20221008
  Transmission Date: 20230113
  Serious: Yes (Life-Threatening, Hospitalization)
  Sender: FDA-Public Use
  Company Number: None

PATIENT
  Age: 31 Year
  Sex: Female

DRUGS (6)
  1. SERTRALINE [Interacting]
     Active Substance: SERTRALINE HYDROCHLORIDE
     Indication: Intentional overdose
     Dosage: 1600 MG, ONCE/SINGLE
     Route: 048
     Dates: start: 20220809, end: 20220809
  2. LORMETAZEPAM [Interacting]
     Active Substance: LORMETAZEPAM
     Indication: Intentional overdose
     Dosage: 2 MG, QD
     Route: 048
     Dates: start: 202203, end: 20220808
  3. LORMETAZEPAM [Interacting]
     Active Substance: LORMETAZEPAM
     Indication: Insomnia
     Dosage: 40 MG, ONCE/SINGLE
     Route: 048
     Dates: start: 20220809, end: 20220809
  4. OLANZAPINE [Interacting]
     Active Substance: OLANZAPINE
     Indication: Intentional overdose
     Dosage: 135 MG, ONCE/SINGLE
     Route: 048
     Dates: start: 20220809, end: 20220809
  5. PREGABALIN [Interacting]
     Active Substance: PREGABALIN
     Indication: Intentional overdose
     Dosage: 350 MG, QD
     Route: 048
     Dates: start: 20220324, end: 20220808
  6. PREGABALIN [Interacting]
     Active Substance: PREGABALIN
     Indication: Depression
     Dosage: (28 COMPRIMIDOS EN TOTAL EN UNA SOLA TOMA)
     Route: 048
     Dates: start: 20220809, end: 20220809

REACTIONS (3)
  - Depressed level of consciousness [Recovered/Resolved]
  - Intentional overdose [Recovered/Resolved]
  - Suicide attempt [Recovered/Resolved]

NARRATIVE: CASE EVENT DATE: 20220809
